FAERS Safety Report 6752375-6 (Version None)
Quarter: 2010Q2

REPORT INFORMATION
  Report Type: 
  Country: None (occurrence: None)
  Receive Date: 20100601
  Receipt Date: 20100601
  Transmission Date: 20101027
  Serious: Yes (Other)
  Sender: FDA-Public Use
  Company Number: None

PATIENT
  Age: 46 Year
  Sex: Female
  Weight: 45.3597 kg

DRUGS (1)
  1. ASMANEX TWISTHALER [Suspect]
     Indication: ACUTE LUNG INJURY
     Dosage: INHAL
     Dates: start: 20100330, end: 20100410

REACTIONS (12)
  - CHILLS [None]
  - CONFUSIONAL STATE [None]
  - HALLUCINATION, AUDITORY [None]
  - HYPERTENSION [None]
  - INSOMNIA [None]
  - NAUSEA [None]
  - NIGHT SWEATS [None]
  - PARANOIA [None]
  - THIRST [None]
  - TREMOR [None]
  - VERTIGO [None]
  - WEIGHT DECREASED [None]
